FAERS Safety Report 12135948 (Version 1)
Quarter: 2016Q1

REPORT INFORMATION
  Report Type: Spontaneous
  Country: US (occurrence: US)
  Receive Date: 20160302
  Receipt Date: 20160302
  Transmission Date: 20160526
  Serious: Yes (Other)
  Sender: FDA-Public Use
  Company Number: US-ASTRAZENECA-2016SE20045

PATIENT
  Age: 62 Year
  Sex: Female
  Weight: 77.1 kg

DRUGS (6)
  1. ATENOLOL. [Suspect]
     Active Substance: ATENOLOL
     Indication: BLOOD PRESSURE ABNORMAL
     Route: 048
     Dates: start: 2006
  2. PANTOPRAZOLE [Concomitant]
     Active Substance: PANTOPRAZOLE SODIUM
     Indication: ABDOMINAL DISCOMFORT
     Route: 048
     Dates: start: 2006
  3. SULINDAC. [Concomitant]
     Active Substance: SULINDAC
     Indication: ARTHRITIS
     Route: 048
     Dates: start: 2006
  4. MOVANTIK [Suspect]
     Active Substance: NALOXEGOL OXALATE
     Indication: CONSTIPATION
     Route: 048
  5. OXYCOTIN [Concomitant]
     Indication: ARTHRALGIA
     Route: 048
     Dates: start: 2014
  6. OXYCOTIN [Concomitant]
     Indication: LEUKAEMIA
     Route: 048
     Dates: start: 2014

REACTIONS (3)
  - Body height decreased [Not Recovered/Not Resolved]
  - Abdominal pain upper [Unknown]
  - Leukaemia [Unknown]

NARRATIVE: CASE EVENT DATE: 2011
